FAERS Safety Report 4385478-4 (Version None)
Quarter: 2004Q2

REPORT INFORMATION
  Report Type: 
  Country: None (occurrence: None)
  Receive Date: 20040628
  Receipt Date: 20040614
  Transmission Date: 20050107
  Serious: Yes (Other)
  Sender: FDA-Public Use
  Company Number: 200416100GDDC

PATIENT
  Age: 59 Year
  Sex: Female

DRUGS (4)
  1. LEFLUNOMIDE [Suspect]
     Indication: RHEUMATOID ARTHRITIS
     Dates: start: 20020101
  2. PREDNISONE [Concomitant]
  3. KETOPROFEN [Concomitant]
     Dosage: DOSE: UNK
  4. TRAMADOL [Concomitant]
     Dosage: DOSE: UNK

REACTIONS (4)
  - C-REACTIVE PROTEIN INCREASED [None]
  - CUTANEOUS LUPUS ERYTHEMATOSUS [None]
  - ERYTHEMA ANNULARE [None]
  - RASH [None]
